FAERS Safety Report 13188928 (Version 1)
Quarter: 2017Q1

REPORT INFORMATION
  Report Type: Spontaneous
  Country: US (occurrence: US)
  Receive Date: 20170206
  Receipt Date: 20170206
  Transmission Date: 20170428
  Serious: Yes (Other)
  Sender: FDA-Public Use
  Company Number: US-TEVA-737182ACC

PATIENT
  Age: 22 Year
  Sex: Female
  Weight: 81.72 kg

DRUGS (6)
  1. GABAPENTIN. [Concomitant]
     Active Substance: GABAPENTIN
     Indication: NECK PAIN
  2. AMITRIPTYLINE [Concomitant]
     Active Substance: AMITRIPTYLINE
     Indication: HEADACHE
  3. CYCLOBENZAPRINE [Concomitant]
     Active Substance: CYCLOBENZAPRINE
     Indication: NECK PAIN
  4. PARAGARD T 380A [Suspect]
     Active Substance: COPPER
     Indication: CONTRACEPTION
     Dates: start: 201406
  5. HYDROCODONE [Concomitant]
     Active Substance: HYDROCODONE
     Indication: NECK PAIN
  6. AMITRIPTYLINE [Concomitant]
     Active Substance: AMITRIPTYLINE
     Indication: NECK PAIN

REACTIONS (9)
  - Pollakiuria [Unknown]
  - Vaginal haemorrhage [Not Recovered/Not Resolved]
  - Chlamydial infection [Unknown]
  - Pain [Not Recovered/Not Resolved]
  - Gonorrhoea [Unknown]
  - Pelvic discomfort [Unknown]
  - Purulence [Unknown]
  - Pelvic pain [Unknown]
  - Device dislocation [Not Recovered/Not Resolved]

NARRATIVE: CASE EVENT DATE: 201608
